FAERS Safety Report 22267906 (Version 1)
Quarter: 2023Q2

REPORT INFORMATION
  Report Type: Spontaneous
  Country: US (occurrence: US)
  Receive Date: 20230430
  Receipt Date: 20230430
  Transmission Date: 20230721
  Serious: No
  Sender: FDA-Public Use
  Company Number: US-002147023-NVSC2023US096069

PATIENT

DRUGS (1)
  1. LEQVIO [Suspect]
     Active Substance: INCLISIRAN SODIUM
     Indication: Hyperlipidaemia
     Dosage: 284 MG, OTHER, (INITIAL, 90 DAYS AND EVERY 6 MONTHS THEREAFTER)
     Route: 058
     Dates: start: 20230425, end: 20230425

REACTIONS (2)
  - Myalgia [Unknown]
  - Muscular weakness [Unknown]
